FAERS Safety Report 16864996 (Version 2)
Quarter: 2020Q1

REPORT INFORMATION
  Report Type: Report from Study
  Country: None (occurrence: NL)
  Receive Date: 20190929
  Receipt Date: 20200312
  Transmission Date: 20200409
  Serious: Yes (Hospitalization, Other)
  Sender: FDA-Public Use
  Company Number: NL-ABBVIE-19S-114-2712235-00

PATIENT
  Sex: Male
  Weight: 86 kg

DRUGS (2)
  1. DUODOPA [Suspect]
     Active Substance: CARBIDOPA\LEVODOPA
     Indication: PARKINSON^S DISEASE
     Dosage: MD: 3ML, CD: 2.9ML, ED 2.5ML NIGHT PUMP: ND 2.6ML, ED: 1ML
     Route: 050
     Dates: start: 20181024
  2. DUODOPA [Suspect]
     Active Substance: CARBIDOPA\LEVODOPA
     Dosage: MD 3.0 CD 3.2 ED 2.5 CDN 2.6 EDN 1.0
     Route: 050

REACTIONS (14)
  - Dyskinesia [Recovered/Resolved]
  - Bradykinesia [Not Recovered/Not Resolved]
  - Muscle rigidity [Not Recovered/Not Resolved]
  - Weight decreased [Recovered/Resolved]
  - Spinal stenosis [Recovered/Resolved]
  - Decreased appetite [Not Recovered/Not Resolved]
  - Disturbance in attention [Not Recovered/Not Resolved]
  - Cognitive disorder [Not Recovered/Not Resolved]
  - Hypoaesthesia [Not Recovered/Not Resolved]
  - Memory impairment [Not Recovered/Not Resolved]
  - Physical examination abnormal [Not Recovered/Not Resolved]
  - Weight increased [Not Recovered/Not Resolved]
  - Paraesthesia [Unknown]
  - On and off phenomenon [Not Recovered/Not Resolved]
